FAERS Safety Report 9796349 (Version 1)
Quarter: 2014Q1

REPORT INFORMATION
  Report Type: Spontaneous
  Country: JP (occurrence: JP)
  Receive Date: 20140103
  Receipt Date: 20140103
  Transmission Date: 20141002
  Serious: Yes (Death)
  Sender: FDA-Public Use
  Company Number: JP-BAXTER-2013BAX052953

PATIENT
  Sex: Male

DRUGS (1)
  1. DIANEAL-N PD-2 1.5 [Suspect]
     Indication: RENAL FAILURE CHRONIC
     Route: 033
     Dates: end: 20131219

REACTIONS (1)
  - Neoplasm malignant [Fatal]
